FAERS Safety Report 12250851 (Version 2)
Quarter: 2016Q2

REPORT INFORMATION
  Report Type: Spontaneous
  Country: US (occurrence: US)
  Receive Date: 20160409
  Receipt Date: 20160602
  Transmission Date: 20160815
  Serious: No
  Sender: FDA-Public Use
  Company Number: US-009507513-1603USA010718

PATIENT
  Age: 23 Year
  Sex: Female
  Weight: 84.81 kg

DRUGS (2)
  1. NEXPLANON [Suspect]
     Active Substance: ETONOGESTREL
     Dosage: DOSE/FREQUENCY: 68MG/ ONE ROD PER 3 YEAR
     Route: 059
     Dates: start: 20160316
  2. NEXPLANON [Suspect]
     Active Substance: ETONOGESTREL
     Indication: CONTRACEPTION
     Dosage: DOSE/FREQUENCY: 68MG/ ONE ROD PER 3 YEAR
     Route: 059
     Dates: start: 20150128, end: 20160316

REACTIONS (2)
  - Pain in extremity [Recovered/Resolved]
  - Device breakage [Recovered/Resolved]

NARRATIVE: CASE EVENT DATE: 20160316
